FAERS Safety Report 23430324 (Version 2)
Quarter: 2024Q1

REPORT INFORMATION
  Report Type: Spontaneous
  Country: US (occurrence: US)
  Receive Date: 20240123
  Receipt Date: 20240228
  Transmission Date: 20240410
  Serious: No
  Sender: FDA-Public Use
  Company Number: US-SA-SAC20240119001512

PATIENT
  Age: 51 Year
  Sex: Female

DRUGS (1)
  1. KEVZARA [Suspect]
     Active Substance: SARILUMAB
     Indication: Rheumatoid arthritis
     Dosage: 200 MG, QOW
     Route: 058
     Dates: start: 202312

REACTIONS (6)
  - Paraesthesia oral [Unknown]
  - Chronic spontaneous urticaria [Unknown]
  - Rosacea [Unknown]
  - Injection site reaction [Unknown]
  - Conjunctivitis [Unknown]
  - Rhinitis [Unknown]
